FAERS Safety Report 11079771 (Version 3)
Quarter: 2015Q2

REPORT INFORMATION
  Report Type: Spontaneous
  Country: US (occurrence: US)
  Receive Date: 20150430
  Receipt Date: 20150527
  Transmission Date: 20150821
  Serious: Yes (Death, Other)
  Sender: FDA-Public Use
  Company Number: US-AMGEN-USASP2015041172

PATIENT
  Age: 78 Year
  Sex: Female
  Weight: 38.55 kg

DRUGS (1)
  1. PROLIA [Suspect]
     Active Substance: DENOSUMAB
     Indication: PRODUCT USED FOR UNKNOWN INDICATION
     Dosage: 60 MG, Q6MO
     Route: 030
     Dates: start: 20111115, end: 20141124

REACTIONS (5)
  - Aphasia [Fatal]
  - Cerebrovascular accident [Fatal]
  - Cardiopulmonary failure [Fatal]
  - Intracranial aneurysm [Unknown]
  - Cardio-respiratory arrest [Fatal]

NARRATIVE: CASE EVENT DATE: 201207
